FAERS Safety Report 17315564 (Version 2)
Quarter: 2020Q1

REPORT INFORMATION
  Report Type: Report from Study
  Country: MY (occurrence: MY)
  Receive Date: 20200124
  Receipt Date: 20200203
  Transmission Date: 20200409
  Serious: Yes (Hospitalization, Disabling, Other)
  Sender: FDA-Public Use
  Company Number: NVSC2020MY006089

PATIENT
  Age: 47 Year
  Sex: Female
  Weight: 49.8 kg

DRUGS (8)
  1. BYL719 [Suspect]
     Active Substance: ALPELISIB
     Dosage: 300 MG
     Route: 048
     Dates: start: 20200107
  2. BYL719 [Suspect]
     Active Substance: ALPELISIB
     Dosage: 50 MG
     Route: 065
  3. BYL719 [Suspect]
     Active Substance: ALPELISIB
     Dosage: 300 MG
     Route: 048
     Dates: start: 20200108
  4. BYL719 [Suspect]
     Active Substance: ALPELISIB
     Dosage: 250 MG
     Route: 048
     Dates: start: 20200113
  5. BYL719 [Suspect]
     Active Substance: ALPELISIB
     Dosage: UNK
     Route: 048
     Dates: start: 20191227, end: 20200106
  6. FULVESTRANT. [Concomitant]
     Active Substance: FULVESTRANT
     Indication: PRODUCT USED FOR UNKNOWN INDICATION
     Dosage: 500 MG
     Route: 065
     Dates: start: 20191218, end: 20191218
  7. BYL719 [Suspect]
     Active Substance: ALPELISIB
     Indication: BREAST CANCER METASTATIC
     Dosage: 300 MG
     Route: 048
     Dates: start: 20191219
  8. BYL719 [Suspect]
     Active Substance: ALPELISIB
     Dosage: 200 MG
     Route: 065

REACTIONS (11)
  - Lethargy [Recovered/Resolved]
  - Oedema peripheral [Recovered/Resolved]
  - Hyperglycaemia [Recovered/Resolved]
  - Radiation skin injury [Unknown]
  - Pain [Recovering/Resolving]
  - Rash [Recovered/Resolved]
  - Restlessness [Unknown]
  - Rash [Recovered/Resolved]
  - Pruritus [Recovering/Resolving]
  - Hyperglycaemia [Recovered/Resolved]
  - Pruritus [Recovered/Resolved]

NARRATIVE: CASE EVENT DATE: 20191225
